FAERS Safety Report 19679301 (Version 2)
Quarter: 2021Q3

REPORT INFORMATION
  Report Type: Spontaneous
  Country: GB (occurrence: GB)
  Receive Date: 20210809
  Receipt Date: 20210817
  Transmission Date: 20211014
  Serious: Yes (Death, Other)
  Sender: FDA-Public Use
  Company Number: GB-SA-2021SA259542

PATIENT
  Sex: Female

DRUGS (228)
  1. DOCETAXEL. [Suspect]
     Active Substance: DOCETAXEL
     Dosage: 108 MG, Q3W DOSE MODIFIED
     Route: 042
     Dates: start: 20150602, end: 20150602
  2. DOCETAXEL. [Suspect]
     Active Substance: DOCETAXEL
     Dosage: 108 MG, Q3W (DOSE FORM: 16)
     Route: 042
  3. CAPECITABINE. [Suspect]
     Active Substance: CAPECITABINE
     Indication: BREAST CANCER METASTATIC
     Dosage: 3000 MG, BID (DOSE FORM: 82) (ADDITIONAL INFO ON DRUG: INTRAVENTRICULAR TABLET)
     Route: 048
     Dates: start: 20170210, end: 20170728
  4. CAPECITABINE. [Suspect]
     Active Substance: CAPECITABINE
     Dosage: 3000MG ONCE DAILY (DOSE FORM: 82)
     Route: 048
  5. TRASTUZUMAB. [Suspect]
     Active Substance: TRASTUZUMAB
     Dosage: 350 MILLIGRAM, LOADING DOSE
     Route: 042
     Dates: start: 20150601, end: 20150601
  6. TRASTUZUMAB. [Suspect]
     Active Substance: TRASTUZUMAB
     Dosage: 140 MILLIGRAM, Q3W, 140 MILLIGRAM, Q3WK
     Route: 042
     Dates: start: 20160215, end: 20160215
  7. TRASTUZUMAB. [Suspect]
     Active Substance: TRASTUZUMAB
     Dosage: 350 MILLIGRAM, (LOADING DOSE; DOSE FORM: 230; CUMULATIVE DOSE: 471.42856 MG)
     Route: 042
     Dates: start: 20150601, end: 20150601
  8. TRASTUZUMAB. [Suspect]
     Active Substance: TRASTUZUMAB
     Dosage: 1 MG, EVERY 3 WEEKS, DOSE REDUCED (PHARMACEUTICAL DOSE FORM: 230)
     Route: 042
  9. ERIBULIN MESILATE [Suspect]
     Active Substance: ERIBULIN
     Dosage: 1.5 MILLIGRAM, Q3WK
     Route: 042
     Dates: start: 20160411, end: 20160411
  10. ERIBULIN MESILATE [Suspect]
     Active Substance: ERIBULIN
     Dosage: EVERY 3 WEEKS; 1.5 UNK (DOSE FORM: 120)
     Route: 042
  11. ERIBULIN MESILATE [Suspect]
     Active Substance: ERIBULIN
     Dosage: EVERY 3 WEEKS; 1.5 UNK (DOSE FORM: 120)
     Route: 042
  12. NERATINIB [Suspect]
     Active Substance: NERATINIB
     Dosage: UNK
  13. NERATINIB [Suspect]
     Active Substance: NERATINIB
     Dosage: 40 MG QD CUMULATIVE DOSE: 224890.0 MG (ADDITIONAL INFO ON DRUG: INTRAVENTRICULAR)
     Route: 048
     Dates: start: 20170901, end: 20180314
  14. PERTUZUMAB. [Suspect]
     Active Substance: PERTUZUMAB
     Dosage: 420 MILLIGRAM, Q3W,TARGETED THERAPY
     Route: 042
  15. PERTUZUMAB. [Suspect]
     Active Substance: PERTUZUMAB
     Dosage: 420 MILLIGRAM, Q3WK, TARGETED THERAPY
     Route: 042
     Dates: start: 20150622, end: 20151102
  16. TRASTUZUMAB EMTANSINE [Suspect]
     Active Substance: ADO-TRASTUZUMAB EMTANSINE
     Indication: BREAST CANCER METASTATIC
     Dosage: 140 MILLIGRAM, Q3W (FORMULATION: INFUSION, SOLUTION)
     Route: 042
  17. TRASTUZUMAB EMTANSINE [Suspect]
     Active Substance: ADO-TRASTUZUMAB EMTANSINE
     Dosage: 140 MILLIGRAM, Q3W
     Route: 042
     Dates: start: 20151201, end: 20160215
  18. TRASTUZUMAB EMTANSINE [Suspect]
     Active Substance: ADO-TRASTUZUMAB EMTANSINE
     Dosage: 140 MG, Q3WK (CUMULATIVE DOSE: 5533.0557 MG)
     Route: 042
     Dates: start: 20160215, end: 20160215
  19. TRASTUZUMAB EMTANSINE [Suspect]
     Active Substance: ADO-TRASTUZUMAB EMTANSINE
     Dosage: 140 MILLIGRAM, Q3W (FORMULATION: INFUSION, SOLUTION)
     Route: 042
  20. CO?AMOXICLAV PHARMANIAGA [Concomitant]
     Dosage: 1875 MILLIGRAM, QD (DOSE FORM: 245)
     Route: 048
     Dates: start: 20170222, end: 20170228
  21. DOMPERIDONE [Concomitant]
     Active Substance: DOMPERIDONE
     Dosage: 10 MG, EVERY 0.33 DAY
     Route: 048
     Dates: start: 20160406, end: 20160421
  22. FILGRASTIM [Concomitant]
     Active Substance: FILGRASTIM
     Dosage: EVERY DAY FOR 3 DAYS STARTING ON DAYS 3 AND 11
     Route: 058
     Dates: start: 20160421, end: 20160712
  23. FILGRASTIM [Concomitant]
     Active Substance: FILGRASTIM
     Dosage: 300 UG, QD (DOSE FORM: 120)
     Route: 058
     Dates: start: 20150725, end: 20150730
  24. GENTAMICIN. [Concomitant]
     Active Substance: GENTAMICIN
     Indication: LOWER RESPIRATORY TRACT INFECTION
     Dosage: DOSE FORM: 120
     Route: 042
     Dates: start: 20170213, end: 201702
  25. RED BLOOD CELLS, CONCENTRATED [Concomitant]
     Active Substance: HUMAN RED BLOOD CELL
     Dosage: 2 UNIT
     Route: 042
     Dates: start: 20160702, end: 20160702
  26. LOPERAMIDE [Concomitant]
     Active Substance: LOPERAMIDE
     Dosage: 2 MILLIGRAM, PRN (DOSE FORM: 245)
     Route: 048
     Dates: start: 20170901, end: 20171124
  27. LOPERAMIDE [Concomitant]
     Active Substance: LOPERAMIDE
     Dosage: DOSE FORM: 245 (ADDITIONAL INFO ON DRUG: INTRAVENTRICULAR)
     Route: 048
     Dates: start: 20170901, end: 20171124
  28. MUPIROCIN. [Concomitant]
     Active Substance: MUPIROCIN
     Dosage: 2 PERCENT, QD
     Route: 061
     Dates: start: 20160620, end: 20160624
  29. MUPIROCIN. [Concomitant]
     Active Substance: MUPIROCIN
     Dosage: 6 %
     Route: 061
     Dates: start: 20160620, end: 20160624
  30. RED BLOOD CELLS [Concomitant]
     Active Substance: HUMAN RED BLOOD CELL
     Dosage: 2 U, QD
     Route: 042
     Dates: start: 20180626, end: 20180626
  31. DOCETAXEL. [Suspect]
     Active Substance: DOCETAXEL
     Dosage: 108 MG, Q3W DOSE MODIFIED
     Route: 042
     Dates: start: 20150602, end: 20150602
  32. VINORELBINE TARTRATE. [Suspect]
     Active Substance: VINORELBINE TARTRATE
     Dosage: 60 MILLIGRAM
     Route: 048
  33. VINORELBINE TARTRATE. [Suspect]
     Active Substance: VINORELBINE TARTRATE
     Dosage: 60 MILLIGRAM
     Route: 048
     Dates: start: 20180503, end: 20180608
  34. TRASTUZUMAB. [Suspect]
     Active Substance: TRASTUZUMAB
     Dosage: 140 MILLIGRAM, Q3W, 140 MILLIGRAM, Q3WK
     Route: 042
     Dates: start: 20160215, end: 20160215
  35. TRASTUZUMAB. [Suspect]
     Active Substance: TRASTUZUMAB
     Dosage: 1 DOSAGE FORM, Q3W,DOSE REDUCED
     Route: 042
  36. TRASTUZUMAB. [Suspect]
     Active Substance: TRASTUZUMAB
     Indication: HER2 POSITIVE BREAST CANCER
     Dosage: 140 MG, Q3W
     Route: 042
     Dates: start: 20151201, end: 20151221
  37. TRASTUZUMAB. [Suspect]
     Active Substance: TRASTUZUMAB
     Dosage: 300 MG, Q3W (DOSE FORM: 230)
     Route: 042
  38. TRASTUZUMAB. [Suspect]
     Active Substance: TRASTUZUMAB
     Dosage: 350 MG, (LOADING DOSE FORM: INFUSION, SOLUTION; DOSE FORM: 230)
     Route: 041
     Dates: start: 20150601, end: 20150601
  39. TRASTUZUMAB. [Suspect]
     Active Substance: TRASTUZUMAB
     Dosage: 300 MG, 3 WEEK
     Route: 042
     Dates: start: 20150629, end: 20151102
  40. ERIBULIN MESILATE [Suspect]
     Active Substance: ERIBULIN
     Dosage: UNK
     Route: 065
  41. ERIBULIN MESYLATE [Suspect]
     Active Substance: ERIBULIN MESYLATE
     Dosage: 1.5 MG, EVERY 3 WEEKS
     Route: 042
     Dates: start: 20160411
  42. ERIBULIN MESYLATE [Suspect]
     Active Substance: ERIBULIN MESYLATE
     Dosage: 1.5 MG, EVERY 3 WEEKS
     Route: 042
     Dates: start: 20160411
  43. NERATINIB [Suspect]
     Active Substance: NERATINIB
     Dosage: 240 MG, QD
     Route: 048
     Dates: start: 20170901, end: 20180216
  44. NERATINIB [Suspect]
     Active Substance: NERATINIB
     Dosage: 240 MILLIGRAM, QD
     Route: 048
     Dates: start: 20180223, end: 20180420
  45. NERATINIB [Suspect]
     Active Substance: NERATINIB
     Dosage: 240 MG, QD
     Route: 048
     Dates: start: 20170901, end: 20180314
  46. NERATINIB [Suspect]
     Active Substance: NERATINIB
     Dosage: 240 MG, QD
     Route: 048
     Dates: start: 20180223, end: 20180420
  47. PERTUZUMAB. [Suspect]
     Active Substance: PERTUZUMAB
     Dosage: 420 MILLIGRAM, Q3W,TARGETED THERAPY
     Route: 042
     Dates: start: 20150622, end: 20150622
  48. PERTUZUMAB. [Suspect]
     Active Substance: PERTUZUMAB
     Dosage: 420 MILLIGRAM, Q3W,TARGETED THERAPY
     Route: 042
     Dates: start: 20150622, end: 20150622
  49. TRASTUZUMAB EMTANSINE [Suspect]
     Active Substance: ADO-TRASTUZUMAB EMTANSINE
     Dosage: 172 MG, Q3W (DOSE FORM: 230) CUMULATIVE DOSE: 999.57935 MG
     Route: 041
     Dates: start: 20151201, end: 20151221
  50. AMLODIPINE [Concomitant]
     Active Substance: AMLODIPINE BESYLATE
     Indication: PRODUCT USED FOR UNKNOWN INDICATION
     Dosage: 10 MG (DOSE FORM: 245)
     Route: 048
  51. CLAVULANATE POTASSIUM [Concomitant]
     Active Substance: CLAVULANATE POTASSIUM
     Indication: LOWER RESPIRATORY TRACT INFECTION
     Dosage: 1875 MG, QD (FORMULATION: 245)
     Route: 048
     Dates: start: 20170222, end: 20170228
  52. CO?AMOXICLAV PHARMANIAGA [Concomitant]
     Dosage: 625 MILLIGRAM, QD
     Route: 048
     Dates: start: 20170222, end: 20170228
  53. GENTAMICIN. [Concomitant]
     Active Substance: GENTAMICIN
     Dosage: UNK
     Route: 042
     Dates: start: 20170213, end: 201702
  54. GENTAMICIN. [Concomitant]
     Active Substance: GENTAMICIN
     Dosage: UNK
     Route: 042
     Dates: start: 20170213, end: 201702
  55. LOPERAMIDE [Concomitant]
     Active Substance: LOPERAMIDE
     Indication: DIARRHOEA
     Dosage: DOSE FORM: 245
     Route: 048
     Dates: start: 20170901, end: 20171124
  56. MUPIROCIN. [Concomitant]
     Active Substance: MUPIROCIN
     Indication: PROPHYLAXIS
     Dosage: UNK, EVERY 0.33 DAY
     Route: 061
     Dates: start: 20160620, end: 20160624
  57. DOCETAXEL. [Suspect]
     Active Substance: DOCETAXEL
     Dosage: 108 MG, Q3W (DOSE FORM: 16)
     Route: 042
  58. CAPECITABINE. [Suspect]
     Active Substance: CAPECITABINE
     Dosage: 3000 MG, ONCE DAILY (DOSE FORM: 82) (ADDITIONAL INFO ON DRUG: INTRAVENTRICULAR TABLET)
     Route: 048
  59. CAPECITABINE. [Suspect]
     Active Substance: CAPECITABINE
     Dosage: 1500 MG, (FREQUENCY: 0.5 DAY)
     Route: 048
  60. VINORELBINE TARTRATE. [Suspect]
     Active Substance: VINORELBINE TARTRATE
     Dosage: 60 MILLIGRAM
     Route: 048
  61. TRASTUZUMAB. [Suspect]
     Active Substance: TRASTUZUMAB
     Indication: BREAST CANCER METASTATIC
     Dosage: 350 MILLIGRAM, (LOADING DOSE; DOSE FORM: 230; CUMULATIVE DOSE: 471.42856 MG)
     Route: 042
     Dates: start: 20150601, end: 20150601
  62. TRASTUZUMAB. [Suspect]
     Active Substance: TRASTUZUMAB
     Dosage: 300 MG, 3 WEEK (DOSE MODIFIED)
     Route: 042
     Dates: start: 20151102, end: 20151102
  63. ERIBULIN [Suspect]
     Active Substance: ERIBULIN
     Dosage: 1.5 MG, Q3W
     Route: 042
     Dates: start: 20160411, end: 20160624
  64. ERIBULIN [Suspect]
     Active Substance: ERIBULIN
     Dosage: 1.5 MG, Q3W
     Route: 042
     Dates: start: 20160411, end: 20160624
  65. ERIBULIN MESILATE [Suspect]
     Active Substance: ERIBULIN
     Dosage: 1.5 MILLIGRAM, Q3WK
     Route: 042
     Dates: start: 20160411
  66. ERIBULIN MESILATE [Suspect]
     Active Substance: ERIBULIN
     Dosage: 1.5 MILLIGRAM, Q3WK
     Route: 042
     Dates: start: 20160411
  67. ERIBULIN MESILATE [Suspect]
     Active Substance: ERIBULIN
     Dosage: 1.5 MILLIGRAM, Q3WK
     Route: 042
     Dates: start: 20160411
  68. ERIBULIN MESILATE [Suspect]
     Active Substance: ERIBULIN
     Dosage: UNK
     Route: 065
  69. ERIBULIN MESYLATE [Suspect]
     Active Substance: ERIBULIN MESYLATE
     Dosage: 1.5 MG, EVERY 3 WEEKS
     Route: 042
     Dates: start: 20160411
  70. ERIBULIN MESYLATE [Suspect]
     Active Substance: ERIBULIN MESYLATE
     Dosage: UNK
     Route: 065
  71. NERATINIB [Suspect]
     Active Substance: NERATINIB
     Indication: BREAST CANCER METASTATIC
     Dosage: 240 MG, QD
     Route: 048
     Dates: start: 20180223, end: 20180420
  72. NERATINIB [Suspect]
     Active Substance: NERATINIB
     Dosage: 240 MG
     Route: 048
  73. NERATINIB [Suspect]
     Active Substance: NERATINIB
     Dosage: 240 MG, QD
     Route: 048
     Dates: start: 20170901, end: 20180314
  74. NERATINIB [Suspect]
     Active Substance: NERATINIB
     Dosage: 240 MG, QD
     Route: 048
     Dates: start: 20180223, end: 20180420
  75. PERTUZUMAB. [Suspect]
     Active Substance: PERTUZUMAB
     Indication: BREAST CANCER METASTATIC
     Dosage: 1 DF, EVERY 3 WEEK
     Route: 042
  76. PERTUZUMAB. [Suspect]
     Active Substance: PERTUZUMAB
     Indication: HER2 POSITIVE BREAST CANCER
     Dosage: 420 MILLIGRAM, Q3W,TARGETED THERAPY
     Route: 042
  77. PERTUZUMAB. [Suspect]
     Active Substance: PERTUZUMAB
     Dosage: 420 MILLIGRAM, Q3WK, TARGETED THERAPY
     Route: 042
     Dates: start: 20150622, end: 20151102
  78. PERTUZUMAB. [Suspect]
     Active Substance: PERTUZUMAB
     Dosage: 420 MILLIGRAM, Q3WK, TARGETED THERAPY
     Route: 042
     Dates: start: 20150622, end: 20151102
  79. PERTUZUMAB. [Suspect]
     Active Substance: PERTUZUMAB
     Dosage: 1 DF, EVERY 3 WEEK
     Route: 042
  80. TRASTUZUMAB EMTANSINE [Suspect]
     Active Substance: ADO-TRASTUZUMAB EMTANSINE
     Dosage: 172 MG, Q3W
     Route: 042
     Dates: start: 20151201, end: 20151221
  81. TRASTUZUMAB EMTANSINE [Suspect]
     Active Substance: ADO-TRASTUZUMAB EMTANSINE
     Dosage: 172 MG, Q3W
     Route: 042
     Dates: start: 20151201, end: 20151221
  82. TRASTUZUMAB EMTANSINE [Suspect]
     Active Substance: ADO-TRASTUZUMAB EMTANSINE
     Dosage: 140 MILLIGRAM, Q3W (FORMULATION: INFUSION, SOLUTION)
     Route: 042
  83. AMLODIPINE [Concomitant]
     Active Substance: AMLODIPINE BESYLATE
     Dosage: 10 MG (DOSE FORM: 245)
     Route: 048
  84. CIPROFLOXACIN. [Concomitant]
     Active Substance: CIPROFLOXACIN
     Dosage: 500 MILLIGRAM, QD (DOSE FORM: 245)
     Route: 048
     Dates: start: 20151218, end: 20151225
  85. CIPROFLOXACIN. [Concomitant]
     Active Substance: CIPROFLOXACIN
     Dosage: 1000 MILLIGRAM, QD (DOSE FORM: 245)
     Route: 048
     Dates: start: 20151218, end: 20151225
  86. CO?AMOXICLAV PHARMANIAGA [Concomitant]
     Dosage: 625 MILLIGRAM, QD
     Route: 048
     Dates: start: 20170222, end: 20170228
  87. DOMPERIDONE [Concomitant]
     Active Substance: DOMPERIDONE
     Indication: PRODUCT USED FOR UNKNOWN INDICATION
     Dosage: 10 MILLIGRAM, QD (DOSE FORM: 245) (ADDITIONAL INFO ON DRUG: INTRAVENTRICULAR)
     Route: 048
     Dates: start: 20160406, end: 20160421
  88. FILGRASTIM [Concomitant]
     Active Substance: FILGRASTIM
     Indication: PRODUCT USED FOR UNKNOWN INDICATION
     Dosage: 300 UG, QD (DOSE FORM: 120)
     Route: 058
     Dates: start: 20150725, end: 20150730
  89. FOLIC ACID. [Concomitant]
     Active Substance: FOLIC ACID
     Dosage: 5 MG, QD (DOSE FORM: 245)
     Route: 048
     Dates: start: 20150828, end: 201708
  90. GRANULOCYTE COLONY STIMULATING FACTOR [Concomitant]
     Active Substance: GRANULOCYTE COLONY-STIMULATING FACTOR NOS
     Dosage: 300 UG, QD (DOSE FORM: 120) ALSO RECEIVED 300 MCG FROM 25?JUL?2015 TO 30?JUL?2015
     Route: 058
     Dates: start: 20150725, end: 20150730
  91. LOPERAMIDE [Concomitant]
     Active Substance: LOPERAMIDE
     Dosage: DOSE FORM: 245
     Route: 048
     Dates: start: 20170901, end: 20171124
  92. POTASSIUM [Concomitant]
     Active Substance: POTASSIUM
     Indication: NUTRITIONAL SUPPLEMENTATION
     Dosage: 2 TABLETS EVERY DAY (FORMULATION: 245)
     Route: 048
     Dates: start: 20150828, end: 20150830
  93. SANDO K [POTASSIUM BICARBONATE;POTASSIUM CHLORIDE] [Concomitant]
     Active Substance: POTASSIUM BICARBONATE\POTASSIUM CHLORIDE
     Indication: NUTRITIONAL SUPPLEMENTATION
     Dosage: UNK UNK, BID
     Route: 048
     Dates: start: 20150828, end: 20150830
  94. TAZOCIN [Concomitant]
     Active Substance: PIPERACILLIN SODIUM\TAZOBACTAM SODIUM
     Indication: LOWER RESPIRATORY TRACT INFECTION
     Dosage: UNK
     Route: 042
     Dates: start: 20170213, end: 20170215
  95. DOCETAXEL. [Suspect]
     Active Substance: DOCETAXEL
     Indication: BREAST CANCER METASTATIC
     Dosage: 108 MG, Q3W DOSE MODIFIED
     Route: 042
     Dates: start: 20150602, end: 20150602
  96. DOCETAXEL. [Suspect]
     Active Substance: DOCETAXEL
     Dosage: 108 MG, Q3W (DOSE FORM: 16)
     Route: 042
  97. DOCETAXEL. [Suspect]
     Active Substance: DOCETAXEL
     Dosage: 80 MG, Q3W (DOSE DISCONTINUED)
     Route: 042
     Dates: start: 20150629, end: 20150720
  98. DOCETAXEL. [Suspect]
     Active Substance: DOCETAXEL
     Dosage: 86 MG, Q3W DOSE DISCONTINUED, THREE WEEK (DOSE FORM: 120)
     Route: 042
     Dates: start: 20150629, end: 20150720
  99. DOCETAXEL. [Suspect]
     Active Substance: DOCETAXEL
     Dosage: 108 MG, Q3W (DOSE FORM: 16)
     Route: 042
  100. DOCETAXEL. [Suspect]
     Active Substance: DOCETAXEL
     Dosage: 108 MG, Q3W DOSE MODIFIED
     Route: 042
     Dates: start: 20150602, end: 20150602
  101. CAPECITABINE. [Suspect]
     Active Substance: CAPECITABINE
     Dosage: 1500 MG, QD (DOSE FORM: 82) (ADDITIONAL INFO ON DRUG: INTRAVENTRICULAR TABLET)
     Route: 048
     Dates: start: 20170210, end: 20170728
  102. VINORELBINE TARTRATE. [Suspect]
     Active Substance: VINORELBINE TARTRATE
     Dosage: 60 MILLIGRAM, UNK
     Route: 048
     Dates: start: 20180608, end: 20180810
  103. VINORELBINE TARTRATE. [Suspect]
     Active Substance: VINORELBINE TARTRATE
     Dosage: 60 MILLIGRAM, UNK
     Route: 048
     Dates: start: 20180608, end: 20180810
  104. TRASTUZUMAB. [Suspect]
     Active Substance: TRASTUZUMAB
     Indication: HER2 POSITIVE BREAST CANCER
     Dosage: 1 DOSAGE FORM, Q3W,DOSE REDUCED
     Route: 042
  105. TRASTUZUMAB. [Suspect]
     Active Substance: TRASTUZUMAB
     Dosage: 300 MILLIGRAM, Q3W (DOSE MODIFIED)
     Route: 042
     Dates: start: 20150629, end: 20151102
  106. TRASTUZUMAB. [Suspect]
     Active Substance: TRASTUZUMAB
     Dosage: 140 MILLIGRAM, Q3W, 140 MILLIGRAM, Q3WK
     Route: 042
     Dates: start: 20160215, end: 20160215
  107. TRASTUZUMAB. [Suspect]
     Active Substance: TRASTUZUMAB
     Dosage: 350 MILLIGRAM, LOADING DOSE
     Route: 042
     Dates: start: 20150601, end: 20150601
  108. TRASTUZUMAB. [Suspect]
     Active Substance: TRASTUZUMAB
     Dosage: 300 MG, 3 WEEK
     Route: 042
     Dates: start: 20150629, end: 20150629
  109. ERIBULIN MESILATE [Suspect]
     Active Substance: ERIBULIN
     Dosage: 1.5 MG, 3 WEEK
     Route: 042
     Dates: start: 20160624, end: 20160624
  110. ERIBULIN MESILATE [Suspect]
     Active Substance: ERIBULIN
     Dosage: 1.5 MILLIGRAM, Q2WK
     Route: 042
  111. ERIBULIN MESILATE [Suspect]
     Active Substance: ERIBULIN
     Dosage: EVERY 3 WEEKS; 1.5 UNK (DOSE FORM: 120)
     Route: 042
  112. NERATINIB [Suspect]
     Active Substance: NERATINIB
     Dosage: 40 MG QD CUMULATIVE DOSE: 224890.0 MG (ADDITIONAL INFO ON DRUG: INTRAVENTRICULAR)
     Route: 048
     Dates: start: 20170901, end: 20180314
  113. NERATINIB [Suspect]
     Active Substance: NERATINIB
     Dosage: 40 MG
     Route: 048
     Dates: start: 20170901
  114. NERATINIB [Suspect]
     Active Substance: NERATINIB
     Dosage: 240 MG, QD
     Route: 048
     Dates: start: 20170901, end: 20180314
  115. NERATINIB [Suspect]
     Active Substance: NERATINIB
     Dosage: 40 MG, QD
     Route: 048
  116. PERTUZUMAB. [Suspect]
     Active Substance: PERTUZUMAB
     Dosage: 420 MILLIGRAM, Q3WK, TARGETED THERAPY
     Route: 042
     Dates: start: 20150622, end: 20151102
  117. PERTUZUMAB. [Suspect]
     Active Substance: PERTUZUMAB
     Dosage: 420 MILLIGRAM, Q3WK, TARGETED THERAPY
     Route: 042
     Dates: start: 20150622, end: 20151102
  118. TRASTUZUMAB EMTANSINE [Suspect]
     Active Substance: ADO-TRASTUZUMAB EMTANSINE
     Dosage: 172 MILLIGRAM, Q3WK (CUMULATIVE DOSE 7420.23 MG)
     Route: 042
     Dates: start: 20151201
  119. TRASTUZUMAB EMTANSINE [Suspect]
     Active Substance: ADO-TRASTUZUMAB EMTANSINE
     Dosage: 172 MG, EVERY 3 WEEKS (FORMULATION: INFUSION, SOLUTION)
     Route: 042
  120. TRASTUZUMAB EMTANSINE [Suspect]
     Active Substance: ADO-TRASTUZUMAB EMTANSINE
     Dosage: 172 MG, Q3W
     Route: 042
     Dates: start: 20151201, end: 20151221
  121. TRASTUZUMAB EMTANSINE [Suspect]
     Active Substance: ADO-TRASTUZUMAB EMTANSINE
     Dosage: 172 MG, Q3W
     Route: 042
     Dates: start: 20151201, end: 20151221
  122. TRASTUZUMAB EMTANSINE [Suspect]
     Active Substance: ADO-TRASTUZUMAB EMTANSINE
     Dosage: 172 MG, Q3W
     Route: 042
     Dates: start: 20151201, end: 20151221
  123. CIPROFLOXACIN. [Concomitant]
     Active Substance: CIPROFLOXACIN
     Dosage: 1000 MILLIGRAM, QD (DOSE FORM: 245)
     Route: 048
     Dates: start: 20151218, end: 20151225
  124. DOMPERIDONE [Concomitant]
     Active Substance: DOMPERIDONE
     Dosage: 10 MILLIGRAM, QD (DOSE FORM: 245) (ADDITIONAL INFO ON DRUG: INTRAVENTRICULAR)
     Route: 048
     Dates: start: 20160406, end: 20160421
  125. RED BLOOD CELLS, CONCENTRATED [Concomitant]
     Active Substance: HUMAN RED BLOOD CELL
     Dosage: 2 UNIT
     Route: 042
     Dates: start: 20180526, end: 20180526
  126. MEROPENEM. [Concomitant]
     Active Substance: MEROPENEM
     Indication: LOWER RESPIRATORY TRACT INFECTION
     Dosage: DOSE FORM: 120
     Route: 042
     Dates: start: 20170215, end: 20170221
  127. MUPIROCIN. [Concomitant]
     Active Substance: MUPIROCIN
     Dosage: 2 %, EVERY 0.3 DAY
     Route: 061
     Dates: start: 20160620, end: 20160624
  128. PIPERACILLIN AND TAZOBACTAM [Concomitant]
     Active Substance: PIPERACILLIN SODIUM\TAZOBACTAM SODIUM
     Indication: LOWER RESPIRATORY TRACT INFECTION
     Dosage: UNK
     Route: 042
     Dates: start: 20170213, end: 20170215
  129. RED BLOOD CELLS [Concomitant]
     Active Substance: HUMAN RED BLOOD CELL
     Dosage: 2 U, QD
     Route: 042
     Dates: start: 20180626, end: 20180626
  130. TAZOCIN [Concomitant]
     Active Substance: PIPERACILLIN SODIUM\TAZOBACTAM SODIUM
     Dosage: UNK
     Route: 042
     Dates: start: 20170213, end: 20170215
  131. DOCETAXEL. [Suspect]
     Active Substance: DOCETAXEL
     Dosage: 80 MG, Q3W (DOSE DISCONTINUED)
     Route: 042
     Dates: start: 20150629, end: 20150720
  132. DOCETAXEL. [Suspect]
     Active Substance: DOCETAXEL
     Dosage: 108 MG, Q3W DOSE MODIFIED
     Route: 042
     Dates: start: 20150602, end: 20150602
  133. CAPECITABINE. [Suspect]
     Active Substance: CAPECITABINE
     Dosage: 3000 MG, QD (DOSE FORM: 245)
     Route: 048
     Dates: start: 20170210
  134. VINORELBINE TARTRATE. [Suspect]
     Active Substance: VINORELBINE TARTRATE
     Dosage: 60 MILLIGRAM
     Route: 048
  135. VINORELBINE TARTRATE. [Suspect]
     Active Substance: VINORELBINE TARTRATE
     Dosage: 60 MILLIGRAM, UNK
     Route: 048
     Dates: start: 20180608, end: 20180810
  136. ERIBULIN MESILATE [Suspect]
     Active Substance: ERIBULIN
     Indication: HER2 POSITIVE BREAST CANCER
     Dosage: 1.5 MILLIGRAM, Q3WK
     Route: 042
     Dates: start: 20160411
  137. ERIBULIN MESILATE [Suspect]
     Active Substance: ERIBULIN
     Indication: BREAST CANCER METASTATIC
     Dosage: 1.5 MILLIGRAM, Q3WK
     Route: 042
     Dates: start: 20160411, end: 20160411
  138. ERIBULIN MESILATE [Suspect]
     Active Substance: ERIBULIN
     Dosage: 1.5 MG, 3 WEEK
     Route: 042
     Dates: start: 20160411, end: 20160624
  139. ERIBULIN MESYLATE [Suspect]
     Active Substance: ERIBULIN MESYLATE
     Dosage: UNK
     Route: 065
  140. PERTUZUMAB. [Suspect]
     Active Substance: PERTUZUMAB
     Dosage: 840 MILLIGRAM,LOADING CASE
     Route: 042
  141. TRASTUZUMAB EMTANSINE [Suspect]
     Active Substance: ADO-TRASTUZUMAB EMTANSINE
     Dosage: 140 MG, Q3WK (CUMULATIVE DOSE: 5533.0557 MG)
     Route: 042
     Dates: start: 20160215, end: 20160215
  142. CIPROFLOXACIN. [Concomitant]
     Active Substance: CIPROFLOXACIN
     Dosage: 1000 MILLIGRAM, QD (DOSE FORM: 245)
     Route: 048
     Dates: start: 20151218, end: 20151225
  143. CO?AMOXICLAV PHARMANIAGA [Concomitant]
     Dosage: 625 MILLIGRAM, QD
     Route: 048
     Dates: start: 20170222, end: 20170228
  144. DOMPERIDONE [Concomitant]
     Active Substance: DOMPERIDONE
     Dosage: 30 MILLIGRAM, QD
     Route: 048
     Dates: start: 20160406, end: 20160421
  145. FILGRASTIM [Concomitant]
     Active Substance: FILGRASTIM
     Dosage: EVERY DAY FOR 3 DAYS STARTING ON DAYS 3 AND 11
     Route: 058
     Dates: start: 20160421, end: 20160712
  146. FOLIC ACID. [Concomitant]
     Active Substance: FOLIC ACID
     Indication: BLOOD FOLATE DECREASED
     Dosage: 5 MG, QD (DOSE FORM: 245)
     Route: 048
     Dates: start: 20150828, end: 201708
  147. FOLIC ACID. [Concomitant]
     Active Substance: FOLIC ACID
     Dosage: 5 MG, QD (PHARMACEUTICAL DOSE FORM: 245)
     Route: 048
     Dates: start: 20150828
  148. RED BLOOD CELLS, CONCENTRATED [Concomitant]
     Active Substance: HUMAN RED BLOOD CELL
     Dosage: 2 UNIT
     Route: 042
     Dates: start: 20180526, end: 20180526
  149. MUPIROCIN. [Concomitant]
     Active Substance: MUPIROCIN
     Dosage: 2 %, EVERY 0.33 DAY
     Route: 061
     Dates: start: 20160620, end: 20160624
  150. DOCETAXEL. [Suspect]
     Active Substance: DOCETAXEL
     Dosage: 80 MG, Q3W (DOSE DISCONTINUED)
     Route: 042
     Dates: start: 20150629, end: 20150720
  151. DOCETAXEL. [Suspect]
     Active Substance: DOCETAXEL
     Dosage: 108 MG, Q3W DOSE MODIFIED
     Route: 042
     Dates: start: 20150602, end: 20150602
  152. DOCETAXEL. [Suspect]
     Active Substance: DOCETAXEL
     Dosage: 80 MG, Q3W (DOSE DISCONTINUED)
     Route: 042
     Dates: start: 20150629, end: 20150720
  153. CAPECITABINE. [Suspect]
     Active Substance: CAPECITABINE
     Dosage: 1500 MILLIGRAM, BID
     Route: 048
  154. TRASTUZUMAB. [Suspect]
     Active Substance: TRASTUZUMAB
     Dosage: 172 MILLIGRAM, Q3W
     Route: 042
     Dates: start: 20151201, end: 20151221
  155. TRASTUZUMAB. [Suspect]
     Active Substance: TRASTUZUMAB
     Dosage: 140 MILLIGRAM, Q3W, 140 MILLIGRAM, Q3WK
     Route: 042
     Dates: start: 20160215, end: 20160215
  156. TRASTUZUMAB. [Suspect]
     Active Substance: TRASTUZUMAB
     Dosage: UNK UNK, Q3W
     Route: 042
  157. TRASTUZUMAB. [Suspect]
     Active Substance: TRASTUZUMAB
     Dosage: 172 MG, Q3W (DOSE FORM: 293; CUMULATIVE DOSE: 7420.23 MG)
     Route: 042
     Dates: start: 20151201, end: 20151221
  158. ERIBULIN MESYLATE [Suspect]
     Active Substance: ERIBULIN MESYLATE
     Indication: BREAST CANCER METASTATIC
     Dosage: 1.5 MG, Q2WEEKS
     Route: 042
  159. PERTUZUMAB. [Suspect]
     Active Substance: PERTUZUMAB
     Dosage: 420 MG, 3 WEEK, TARGETED THERAPY
     Route: 042
     Dates: start: 20151102, end: 20151102
  160. PERTUZUMAB. [Suspect]
     Active Substance: PERTUZUMAB
     Dosage: 420 MG, 3 WEEK, TARGETED THERAPY
     Route: 042
     Dates: start: 20151102, end: 20151102
  161. PERTUZUMAB. [Suspect]
     Active Substance: PERTUZUMAB
     Dosage: 1 DF, EVERY 3 WEEK
     Route: 042
  162. AMLODIPINE [Concomitant]
     Active Substance: AMLODIPINE BESYLATE
     Dosage: 10 MG
     Route: 048
  163. AMOXICILLIN. [Concomitant]
     Active Substance: AMOXICILLIN
     Indication: LOWER RESPIRATORY TRACT INFECTION
     Dosage: 625 MG, QD (FORMULATION: 245)
     Route: 048
     Dates: start: 20170222, end: 20170228
  164. CO?AMOXICLAV PHARMANIAGA [Concomitant]
     Indication: LOWER RESPIRATORY TRACT INFECTION
     Dosage: 625 MILLIGRAM, QD
     Route: 048
     Dates: start: 20170222, end: 20170228
  165. CO?AMOXICLAV PHARMANIAGA [Concomitant]
     Dosage: 625 MILLIGRAM, QD
     Route: 048
     Dates: start: 20170222, end: 20170228
  166. DOMPERIDONE [Concomitant]
     Active Substance: DOMPERIDONE
     Dosage: 10 MILLIGRAM, QD (DOSE FORM: 245) (ADDITIONAL INFO ON DRUG: INTRAVENTRICULAR)
     Route: 048
     Dates: start: 20160406, end: 20160421
  167. FILGRASTIM [Concomitant]
     Active Substance: FILGRASTIM
     Dosage: EVERY DAY FOR 3 DAYS STARTING ON DAYS 3 AND 11
     Route: 058
     Dates: start: 20160421, end: 20160712
  168. FILGRASTIM [Concomitant]
     Active Substance: FILGRASTIM
     Dosage: EVERY DAY FOR 3 DAYS STARTING ON DAYS 3 AND 11
     Route: 058
     Dates: start: 20160421, end: 20160712
  169. FILGRASTIM [Concomitant]
     Active Substance: FILGRASTIM
     Dosage: 300 UG, QD (DOSE FORM: 120)
     Route: 058
     Dates: start: 20150725, end: 20150730
  170. RED BLOOD CELLS, CONCENTRATED [Concomitant]
     Active Substance: HUMAN RED BLOOD CELL
     Indication: PRODUCT USED FOR UNKNOWN INDICATION
     Dosage: 2 DF, QD
     Route: 042
     Dates: start: 20180526, end: 20180526
  171. SANDO K [POTASSIUM BICARBONATE;POTASSIUM CHLORIDE] [Concomitant]
     Active Substance: POTASSIUM BICARBONATE\POTASSIUM CHLORIDE
     Dosage: UNK UNK, BID
     Route: 048
     Dates: start: 20150828, end: 20150830
  172. DOCETAXEL. [Suspect]
     Active Substance: DOCETAXEL
     Dosage: 80 MG DOSE MODIFIED (DOSE FORM: 16)
     Route: 042
     Dates: start: 20150602, end: 20150602
  173. DOCETAXEL. [Suspect]
     Active Substance: DOCETAXEL
     Dosage: 80 MG, Q3W (DOSE DISCONTINUED)
     Route: 042
     Dates: start: 20150629, end: 20150720
  174. DOCETAXEL. [Suspect]
     Active Substance: DOCETAXEL
     Dosage: 80 MG, Q3W (DOSE DISCONTINUED)
     Route: 042
     Dates: start: 20150629, end: 20150720
  175. DOCETAXEL. [Suspect]
     Active Substance: DOCETAXEL
     Dosage: 80 MG, Q3W (DOSE DISCONTINUED)
     Route: 042
     Dates: start: 20150629, end: 20150720
  176. VINORELBINE TARTRATE. [Suspect]
     Active Substance: VINORELBINE TARTRATE
     Indication: HER2 POSITIVE BREAST CANCER
     Dosage: 60 MILLIGRAM
     Route: 048
     Dates: start: 20180530, end: 20180608
  177. VINORELBINE TARTRATE. [Suspect]
     Active Substance: VINORELBINE TARTRATE
     Dosage: 60 MILLIGRAM, UNK
     Route: 048
     Dates: start: 20180608, end: 20180810
  178. VINORELBINE TARTRATE. [Suspect]
     Active Substance: VINORELBINE TARTRATE
     Dosage: 60 MILLIGRAM
     Route: 048
     Dates: start: 20180503, end: 20180608
  179. TRASTUZUMAB. [Suspect]
     Active Substance: TRASTUZUMAB
     Dosage: UNK UNK, Q3W, DOSE REDUCED
     Route: 042
  180. TRASTUZUMAB. [Suspect]
     Active Substance: TRASTUZUMAB
     Dosage: 350 MILLIGRAM, LOADING DOSE
     Route: 042
     Dates: start: 20150601, end: 20150601
  181. TRASTUZUMAB. [Suspect]
     Active Substance: TRASTUZUMAB
     Dosage: 350 MG, (LOADING DOSE FORM: INFUSION, SOLUTION)
     Route: 042
     Dates: start: 20150601
  182. TRASTUZUMAB. [Suspect]
     Active Substance: TRASTUZUMAB
     Dosage: 140 MG, Q3W
     Route: 042
     Dates: start: 20160215, end: 20160215
  183. ERIBULIN MESILATE [Suspect]
     Active Substance: ERIBULIN
     Dosage: EVERY 3 WEEKS; 1.5 UNK (DOSE FORM: 120)
     Route: 042
  184. ERIBULIN MESILATE [Suspect]
     Active Substance: ERIBULIN
     Dosage: UNK
     Route: 065
  185. NERATINIB [Suspect]
     Active Substance: NERATINIB
     Indication: HER2 POSITIVE BREAST CANCER
     Dosage: 40 MG
     Route: 048
  186. NERATINIB [Suspect]
     Active Substance: NERATINIB
     Dosage: 40 MILLIGRAM, QD
     Route: 048
  187. NERATINIB [Suspect]
     Active Substance: NERATINIB
     Dosage: 240 MG, QD
     Route: 048
     Dates: start: 20180223, end: 20180420
  188. PERTUZUMAB. [Suspect]
     Active Substance: PERTUZUMAB
     Dosage: 420 MG, 3 WEEK, TARGETED THERAPY
     Route: 042
     Dates: start: 20151102, end: 20151102
  189. TRASTUZUMAB EMTANSINE [Suspect]
     Active Substance: ADO-TRASTUZUMAB EMTANSINE
     Dosage: 140 MILLIGRAM, Q3W (FORMULATION: INFUSION, SOLUTION)
     Route: 042
  190. CIPROFLOXACIN. [Concomitant]
     Active Substance: CIPROFLOXACIN
     Indication: PRODUCT USED FOR UNKNOWN INDICATION
     Dosage: 1000 MILLIGRAM, QD (DOSE FORM: 245)
     Route: 048
     Dates: start: 20151218, end: 20151225
  191. CLAVULANATE POTASSIUM [Concomitant]
     Active Substance: CLAVULANATE POTASSIUM
     Dosage: 625 MG, QD (FORMULATION: 245)
     Route: 048
     Dates: start: 20170222, end: 20170228
  192. CO?AMOXICLAV PHARMANIAGA [Concomitant]
     Dosage: 625 MILLIGRAM, QD
     Route: 048
     Dates: start: 20170222, end: 20170228
  193. DOMPERIDONE [Concomitant]
     Active Substance: DOMPERIDONE
     Dosage: 10 MILLIGRAM, QD (DOSE FORM: 245) (ADDITIONAL INFO ON DRUG: INTRAVENTRICULAR)
     Route: 048
     Dates: start: 20160406, end: 20160421
  194. FILGRASTIM [Concomitant]
     Active Substance: FILGRASTIM
     Dosage: 300 UG, QD (DOSE FORM: 120)
     Route: 058
     Dates: start: 20150725, end: 20150730
  195. RED BLOOD CELLS, CONCENTRATED [Concomitant]
     Active Substance: HUMAN RED BLOOD CELL
     Dosage: 2 DF, QD
     Route: 042
     Dates: start: 20160702, end: 20160702
  196. LOPERAMIDE [Concomitant]
     Active Substance: LOPERAMIDE
     Dosage: UNK
     Route: 048
     Dates: start: 20170901, end: 20171124
  197. SANDO K [POTASSIUM BICARBONATE;POTASSIUM CHLORIDE] [Concomitant]
     Active Substance: POTASSIUM BICARBONATE\POTASSIUM CHLORIDE
     Dosage: UNK UNK, BID
     Route: 048
     Dates: start: 20150828, end: 20150830
  198. DOCETAXEL. [Suspect]
     Active Substance: DOCETAXEL
     Dosage: 86 MG, Q3W DOSE DISCONTINUED, THREE WEEK (DOSE FORM: 120)
     Route: 042
     Dates: start: 20150629, end: 20150720
  199. DOCETAXEL. [Suspect]
     Active Substance: DOCETAXEL
     Dosage: 80 MG, Q3W (DOSE DISCONTINUED)
     Route: 042
     Dates: start: 20150629, end: 20150720
  200. DOCETAXEL. [Suspect]
     Active Substance: DOCETAXEL
     Dosage: 80 MG, Q3W (DOSE DISCONTINUED)
     Route: 042
     Dates: start: 20150629, end: 20150720
  201. DOCETAXEL. [Suspect]
     Active Substance: DOCETAXEL
     Dosage: 108 MG, Q3W DOSE MODIFIED
     Route: 042
     Dates: start: 20150602, end: 20150602
  202. DOCETAXEL. [Suspect]
     Active Substance: DOCETAXEL
     Dosage: 80 MG, Q3W (DOSE DISCONTINUED)
     Route: 042
     Dates: start: 20150629
  203. CAPECITABINE. [Suspect]
     Active Substance: CAPECITABINE
     Indication: HER2 POSITIVE BREAST CANCER
     Dosage: 3000 MG, ONCE DAILY (DOSE FORM: 82) (ADDITIONAL INFO ON DRUG: INTRAVENTRICULAR TABLET)
     Route: 048
  204. VINORELBINE TARTRATE. [Suspect]
     Active Substance: VINORELBINE TARTRATE
     Dosage: 60 MILLIGRAM, UNK
     Route: 048
     Dates: start: 20180608, end: 20180810
  205. TRASTUZUMAB. [Suspect]
     Active Substance: TRASTUZUMAB
     Indication: BREAST CANCER METASTATIC
     Dosage: 300 MILLIGRAM, Q3W (DOSE MODIFIED)
     Route: 042
  206. TRASTUZUMAB. [Suspect]
     Active Substance: TRASTUZUMAB
     Dosage: 172 MILLIGRAM, Q3W
     Route: 042
     Dates: start: 20151201, end: 20151221
  207. TRASTUZUMAB. [Suspect]
     Active Substance: TRASTUZUMAB
     Dosage: 1 DOSAGE FORM, Q3W,DOSE REDUCED
     Route: 042
  208. ERIBULIN [Suspect]
     Active Substance: ERIBULIN
     Indication: HER2 POSITIVE BREAST CANCER
     Dosage: 1.5 MG, EVERY 3 WEEKS (FORMULATION: 120)
     Route: 042
  209. ERIBULIN MESILATE [Suspect]
     Active Substance: ERIBULIN
     Dosage: EVERY 3 WEEKS; 1.5 UNK (DOSE FORM: 120)
     Route: 042
  210. ERIBULIN MESYLATE [Suspect]
     Active Substance: ERIBULIN MESYLATE
     Dosage: UNK
     Route: 065
  211. ERIBULIN MESYLATE [Suspect]
     Active Substance: ERIBULIN MESYLATE
     Dosage: 1.5 MG, EVERY 3 WEEKS
     Route: 042
     Dates: start: 20160411
  212. NERATINIB [Suspect]
     Active Substance: NERATINIB
     Dosage: 40 MG
     Route: 048
     Dates: start: 20170901, end: 20180314
  213. PERTUZUMAB. [Suspect]
     Active Substance: PERTUZUMAB
     Dosage: 420 MG, 3 WEEK, TARGETED THERAPY
     Route: 042
     Dates: start: 20151102, end: 20151102
  214. TRASTUZUMAB EMTANSINE [Suspect]
     Active Substance: ADO-TRASTUZUMAB EMTANSINE
     Indication: HER2 POSITIVE BREAST CANCER
     Dosage: 140 MG, Q3WK (CUMULATIVE DOSE: 5533.0557 MG)
     Route: 042
     Dates: start: 20160215, end: 20160215
  215. CIPROFLOXACIN. [Concomitant]
     Active Substance: CIPROFLOXACIN
     Dosage: 500 MILLIGRAM (0.5 DAY)
     Route: 048
     Dates: start: 20151218, end: 20151225
  216. DOMPERIDONE [Concomitant]
     Active Substance: DOMPERIDONE
     Dosage: 10 MILLIGRAM, QD (DOSE FORM: 245) (ADDITIONAL INFO ON DRUG: INTRAVENTRICULAR)
     Route: 048
     Dates: start: 20160406, end: 20160421
  217. FILGRASTIM [Concomitant]
     Active Substance: FILGRASTIM
     Dosage: EVERY DAY FOR 3 DAYS STARTING ON DAYS 3 AND 11
     Route: 058
     Dates: start: 20160421, end: 20160712
  218. FILGRASTIM [Concomitant]
     Active Substance: FILGRASTIM
     Dosage: 300 UG, QD (DOSE FORM: 120)
     Route: 058
     Dates: start: 20150725, end: 20150730
  219. FILGRASTIM [Concomitant]
     Active Substance: FILGRASTIM
     Dosage: EVERY DAY FOR 3 DAYS STARTING ON DAYS 3 AND 11
     Route: 058
     Dates: start: 20160421, end: 20160712
  220. FOLIC ACID. [Concomitant]
     Active Substance: FOLIC ACID
     Dosage: 5 MG, QD (PHARMACEUTICAL DOSE FORM: 245)
     Route: 048
     Dates: start: 20150828
  221. FOLIC ACID. [Concomitant]
     Active Substance: FOLIC ACID
     Dosage: 5 MG, QD (DOSE FORM: 245)
     Route: 048
     Dates: start: 20150828, end: 201708
  222. GRANULOCYTE COLONY STIMULATING FACTOR [Concomitant]
     Active Substance: GRANULOCYTE COLONY-STIMULATING FACTOR NOS
     Dosage: EVERY DAY FOR 3 DAYS STARTING ON DAYS 3 AND 11
     Route: 058
     Dates: start: 20160421, end: 20160721
  223. RED BLOOD CELLS, CONCENTRATED [Concomitant]
     Active Substance: HUMAN RED BLOOD CELL
     Dosage: 2 UNIT
     Route: 042
     Dates: start: 20180526, end: 20180526
  224. LOPERAMIDE [Concomitant]
     Active Substance: LOPERAMIDE
     Dosage: 2 MILLIGRAM
     Route: 048
     Dates: start: 20170901, end: 20171124
  225. MEROPENEM. [Concomitant]
     Active Substance: MEROPENEM
     Dosage: DOSE FORM: 120
     Route: 042
     Dates: start: 20170215, end: 20170221
  226. MUPIROCIN. [Concomitant]
     Active Substance: MUPIROCIN
     Dosage: 6 PERCENT, QD
     Route: 061
     Dates: start: 20160620, end: 20160624
  227. SANDO K [POTASSIUM BICARBONATE;POTASSIUM CHLORIDE] [Concomitant]
     Active Substance: POTASSIUM BICARBONATE\POTASSIUM CHLORIDE
     Dosage: 2 DF, QD, 2 TABLETS EVERY DAY (DOSE FORM: 245)
     Route: 048
     Dates: start: 20150828, end: 20150830
  228. TAZOCIN [Concomitant]
     Active Substance: PIPERACILLIN SODIUM\TAZOBACTAM SODIUM
     Dosage: UNK
     Route: 042
     Dates: start: 20170213, end: 20170215

REACTIONS (31)
  - Dyspepsia [Fatal]
  - Colitis [Fatal]
  - Tremor [Fatal]
  - Lethargy [Fatal]
  - Pancytopenia [Fatal]
  - Thrombocytopenia [Fatal]
  - Palpitations [Fatal]
  - Alopecia [Not Recovered/Not Resolved]
  - Product use issue [Unknown]
  - Odynophagia [Fatal]
  - Neutropenia [Fatal]
  - Mucosal inflammation [Fatal]
  - Off label use [Fatal]
  - Folate deficiency [Fatal]
  - Dysphonia [Fatal]
  - Throat irritation [Fatal]
  - Rash pruritic [Fatal]
  - Intentional product misuse [Fatal]
  - Diarrhoea [Fatal]
  - Neuropathy peripheral [Fatal]
  - Decreased appetite [Fatal]
  - Hypoaesthesia [Fatal]
  - Alopecia [Not Recovered/Not Resolved]
  - Disease progression [Fatal]
  - Weight decreased [Fatal]
  - Pyrexia [Fatal]
  - Hyperchlorhydria [Fatal]
  - Fatigue [Unknown]
  - Cough [Fatal]
  - Fatigue [Fatal]
  - Nausea [Unknown]

NARRATIVE: CASE EVENT DATE: 20150601
